FAERS Safety Report 8896360 (Version 1)
Quarter: 2012Q4

REPORT INFORMATION
  Report Type: Spontaneous
  Country: US (occurrence: None)
  Receive Date: 20121107
  Receipt Date: 20121107
  Transmission Date: 20130627
  Serious: Yes (Life-Threatening, Hospitalization)
  Sender: FDA-Public Use
  Company Number: None

PATIENT
  Age: 75 Year
  Sex: Female
  Weight: 70.8 kg

DRUGS (1)
  1. ACTEMRA [Suspect]
     Indication: RHEUMATOID ARTHRITIS
     Dates: start: 20110114, end: 20121011

REACTIONS (10)
  - Nausea [None]
  - Vomiting [None]
  - Diarrhoea [None]
  - Staphylococcal bacteraemia [None]
  - General physical health deterioration [None]
  - Sepsis [None]
  - Metabolic encephalopathy [None]
  - Respiratory failure [None]
  - Pulmonary oedema [None]
  - Hepatic failure [None]
